FAERS Safety Report 14924838 (Version 1)
Quarter: 2018Q2

REPORT INFORMATION
  Report Type: Spontaneous
  Country: US (occurrence: US)
  Receive Date: 20180504
  Receipt Date: 20180504
  Transmission Date: 20180711
  Serious: No
  Sender: FDA-Public Use
  Company Number: None

PATIENT
  Age: 21 Year
  Sex: Female
  Weight: 82.1 kg

DRUGS (7)
  1. KEPPRA [Concomitant]
     Active Substance: LEVETIRACETAM
  2. ABUTEROL [Concomitant]
  3. MIRENA [Suspect]
     Active Substance: LEVONORGESTREL
  4. SPIRONOLACTONE. [Concomitant]
     Active Substance: SPIRONOLACTONE
  5. FLOVENT [Concomitant]
     Active Substance: FLUTICASONE PROPIONATE
  6. OMEPRAZOLE. [Concomitant]
     Active Substance: OMEPRAZOLE
  7. TYLENOL [Concomitant]
     Active Substance: ACETAMINOPHEN

REACTIONS (8)
  - Wrong technique in device usage process [None]
  - Coital bleeding [None]
  - Abdominal pain lower [None]
  - Migraine [None]
  - Muscle spasms [None]
  - Vaginal haemorrhage [None]
  - Complication associated with device [None]
  - Weight increased [None]

NARRATIVE: CASE EVENT DATE: 20180503
